FAERS Safety Report 25494494 (Version 5)
Quarter: 2025Q3

REPORT INFORMATION
  Report Type: Other
  Country: US (occurrence: US)
  Receive Date: 20250630
  Receipt Date: 20250921
  Transmission Date: 20251021
  Serious: No
  Sender: TRAVERE THERAPEUTICS
  Company Number: US-TRAVERE-2025TVT00813

PATIENT
  Age: 72 Year
  Sex: Male

DRUGS (4)
  1. FILSPARI [Suspect]
     Active Substance: SPARSENTAN
     Indication: IgA nephropathy
     Route: 048
     Dates: start: 20250520
  2. FILSPARI [Suspect]
     Active Substance: SPARSENTAN
     Route: 048
     Dates: end: 20250701
  3. FILSPARI [Suspect]
     Active Substance: SPARSENTAN
     Route: 048
  4. TARPEYO [Concomitant]
     Active Substance: BUDESONIDE

REACTIONS (5)
  - Peripheral swelling [Recovering/Resolving]
  - Joint swelling [Recovering/Resolving]
  - Abdominal distension [Recovering/Resolving]
  - Fluid retention [Unknown]
  - Product administration error [Unknown]

NARRATIVE: CASE EVENT DATE: 20250614
